FAERS Safety Report 6880364-X (Version None)
Quarter: 2010Q3

REPORT INFORMATION
  Report Type: 
  Country: None (occurrence: None)
  Receive Date: 20100728
  Receipt Date: 20100719
  Transmission Date: 20110219
  Serious: Yes (Death)
  Sender: FDA-Public Use
  Company Number: AU-KINGPHARMUSA00001-K201000916

PATIENT
  Age: 42 Year
  Sex: Female

DRUGS (5)
  1. AVINZA [Suspect]
     Dosage: UNK
  2. FLUOXETINE [Suspect]
     Dosage: UNK
  3. MIRTAZAPINE [Suspect]
     Dosage: UNK
  4. VALPROIC ACID [Suspect]
     Dosage: UNK
  5. CODEINE [Suspect]
     Dosage: UNK

REACTIONS (2)
  - DRUG INTERACTION [None]
  - SEROTONIN SYNDROME [None]
